FAERS Safety Report 8730327 (Version 4)
Quarter: 2012Q4

REPORT INFORMATION
  Report Type: 
  Country: DE (occurrence: DE)
  Receive Date: 20120817
  Receipt Date: 20120912
  Transmission Date: 20130627
  Serious: Yes (Other)
  Sender: FDA-Public Use
  Company Number: DE-PFIZER INC-2012197156

PATIENT
  Age: 53 Year
  Sex: Male
  Weight: 118 kg

DRUGS (15)
  1. LYRICA [Suspect]
     Indication: DEPRESSION
     Dosage: 100 mg, 2x/day
     Dates: start: 20110322, end: 2011
  2. LYRICA [Suspect]
     Indication: ANXIETY DISORDER
     Dosage: 300 mg, 2x/day
     Dates: start: 2011
  3. CYMBALTA [Concomitant]
     Indication: DEPRESSION
     Dosage: 60 mg, 2x/day
  4. NEBIVOLOL [Concomitant]
     Dosage: 5 mg, UNK
  5. MIRTAZAPINE [Concomitant]
     Dosage: 30 mg, 1x/day
  6. SEROQUEL [Concomitant]
     Dosage: 600 mg, 1x/day
  7. SEROQUEL [Concomitant]
     Dosage: 400 mg, 1x/day
  8. ASS [Concomitant]
     Dosage: 100 mg, 1x/day
  9. BISOPROLOL [Concomitant]
     Dosage: 2.5 mg, 1x/day
  10. FROMOTOP [Concomitant]
     Dosage: 12 ug, 2x/day
  11. CIPRALEX [Concomitant]
     Dosage: 20 mg, 1x/day
  12. OLMETEC [Concomitant]
     Dosage: 20 mg, 1x/day
  13. AVAMYS [Concomitant]
     Dosage: 1 DF, 1x/day
  14. OMEPRAZOL [Concomitant]
     Dosage: 20 mg, 2x/day
     Dates: end: 2011
  15. OTRIVEN [Concomitant]

REACTIONS (1)
  - Cataract [Not Recovered/Not Resolved]
